FAERS Safety Report 20530861 (Version 1)
Quarter: 2022Q1

REPORT INFORMATION
  Report Type: Spontaneous
  Country: US (occurrence: US)
  Receive Date: 20220301
  Receipt Date: 20220301
  Transmission Date: 20220423
  Serious: No
  Sender: FDA-Public Use
  Company Number: US-IGSA-BIG0013126

PATIENT
  Sex: Female
  Weight: 73.47 kg

DRUGS (9)
  1. PROLASTIN-C LIQUID [Suspect]
     Active Substance: .ALPHA.1-PROTEINASE INHIBITOR HUMAN
     Indication: Alpha-1 antitrypsin deficiency
     Dosage: 4408 MILLIGRAM, Q.WK.
     Route: 042
     Dates: start: 20210113
  2. PROLASTIN-C LIQUID [Suspect]
     Active Substance: .ALPHA.1-PROTEINASE INHIBITOR HUMAN
     Dosage: 4408 MILLIGRAM, Q.WK.
     Route: 042
  3. PROLASTIN-C LIQUID [Suspect]
     Active Substance: .ALPHA.1-PROTEINASE INHIBITOR HUMAN
     Dosage: 4408 MILLIGRAM, Q.WK.
     Route: 042
  4. NAC 500 [Concomitant]
  5. ATORVASTATIN [Concomitant]
     Active Substance: ATORVASTATIN
  6. OZEMPIC [Concomitant]
     Active Substance: SEMAGLUTIDE
  7. HUMALOG [Concomitant]
     Active Substance: INSULIN LISPRO
  8. LISINOPRIL [Concomitant]
     Active Substance: LISINOPRIL
  9. TRELEGY ELLIPTA [Concomitant]
     Active Substance: FLUTICASONE FUROATE\UMECLIDINIUM BROMIDE\VILANTEROL TRIFENATATE

REACTIONS (2)
  - Alopecia [Not Recovered/Not Resolved]
  - Stress [Unknown]
